FAERS Safety Report 11224837 (Version 5)
Quarter: 2015Q4

REPORT INFORMATION
  Report Type: Spontaneous
  Country: US (occurrence: None)
  Receive Date: 20150625
  Receipt Date: 20151002
  Transmission Date: 20160304
  Serious: Yes (Life-Threatening, Hospitalization, Other)
  Sender: FDA-Public Use
  Company Number: ADR-2015-01183

PATIENT
  Age: 41 Year
  Sex: Female

DRUGS (2)
  1. DILAUDID [Suspect]
     Active Substance: HYDROMORPHONE HYDROCHLORIDE
     Indication: PAIN
     Dosage: 2.2MG/DAY
  2. COMPOUNDED BACLOFEN INTRATHECAL 400MCG/ML [Suspect]
     Active Substance: BACLOFEN
     Indication: PAIN
     Dosage: 88.01MCG/DAY

REACTIONS (9)
  - Pain [None]
  - Device malfunction [None]
  - Drug withdrawal syndrome [None]
  - Somnolence [None]
  - Ankle fracture [None]
  - Fall [None]
  - Device kink [None]
  - Intentional overdose [None]
  - Foot fracture [None]
